FAERS Safety Report 21674591 (Version 1)
Quarter: 2022Q4

REPORT INFORMATION
  Report Type: Spontaneous
  Country: US (occurrence: None)
  Receive Date: 20221202
  Receipt Date: 20221202
  Transmission Date: 20230113
  Serious: No
  Sender: FDA-Public Use
  Company Number: 2022A388098

PATIENT
  Age: 53 Year
  Sex: Male
  Weight: 83 kg

DRUGS (9)
  1. OMEPRAZOLE [Suspect]
     Active Substance: OMEPRAZOLE
     Route: 048
  2. PAXLOVID [Suspect]
     Active Substance: NIRMATRELVIR\RITONAVIR
     Indication: COVID-19
     Route: 065
  3. FLAGYL [Suspect]
     Active Substance: METRONIDAZOLE\METRONIDAZOLE HYDROCHLORIDE
     Route: 065
  4. CIPRO [Suspect]
     Active Substance: CIPROFLOXACIN HYDROCHLORIDE
     Route: 065
  5. VANCOMYCIN [Suspect]
     Active Substance: VANCOMYCIN
     Route: 065
  6. HYDROCHLOROTHIAZIDE\LISINOPRIL [Concomitant]
     Active Substance: HYDROCHLOROTHIAZIDE\LISINOPRIL
     Indication: Hypertension
     Route: 065
  7. ALLOPURINOL [Concomitant]
     Active Substance: ALLOPURINOL
     Indication: Gout
     Route: 065
  8. AMLODIPINE [Concomitant]
     Active Substance: AMLODIPINE BESYLATE
     Indication: Hypertension
     Route: 065
  9. ATORVASTATIN [Concomitant]
     Active Substance: ATORVASTATIN
     Route: 065

REACTIONS (14)
  - Abdominal discomfort [Unknown]
  - Diverticulitis [Unknown]
  - Clostridium difficile infection [Unknown]
  - Haemorrhage [Unknown]
  - Haemorrhoids [Unknown]
  - Vital capacity abnormal [Unknown]
  - Hypersensitivity [Unknown]
  - Gastrointestinal pain [Unknown]
  - Decreased activity [Unknown]
  - Pain [Unknown]
  - Weight increased [Unknown]
  - Body temperature increased [Unknown]
  - Cough [Unknown]
  - Respiratory tract congestion [Unknown]
